FAERS Safety Report 9977215 (Version 1)
Quarter: 2014Q1

REPORT INFORMATION
  Report Type: Report from Study
  Country: US (occurrence: US)
  Receive Date: 20140306
  Receipt Date: 20140306
  Transmission Date: 20141002
  Serious: No
  Sender: FDA-Public Use
  Company Number: US-ABBVIE-13P-163-1163842-00

PATIENT
  Age: 38 Year
  Sex: Female

DRUGS (4)
  1. HUMIRA [Suspect]
     Indication: PSORIASIS
     Dates: start: 20131006
  2. CITALOPRAM [Concomitant]
     Indication: ANXIETY
     Dosage: BEDTIME
  3. BUPROPION [Concomitant]
     Indication: ANXIETY
     Dosage: IN MORNING
  4. CPAP [Concomitant]
     Indication: SLEEP APNOEA SYNDROME

REACTIONS (2)
  - Drug dispensing error [Not Recovered/Not Resolved]
  - Drug dose omission [Not Recovered/Not Resolved]
